FAERS Safety Report 6985672-X (Version None)
Quarter: 2010Q3

REPORT INFORMATION
  Report Type: 
  Country: None (occurrence: None)
  Receive Date: 20100915
  Receipt Date: 20100907
  Transmission Date: 20110219
  Serious: Yes (Hospitalization)
  Sender: FDA-Public Use
  Company Number: CH-WYE-G06635010

PATIENT
  Age: 61 Year
  Sex: Female

DRUGS (18)
  1. EFFEXOR XR [Suspect]
     Indication: DEPRESSION
     Dosage: LONG TERM ADMINISTRATION AT 150MG 2X PER DAY
     Route: 048
  2. ACETAMINOPHEN [Concomitant]
     Dosage: AS NECESSARY
  3. DALMADORM [Concomitant]
     Route: 048
  4. NOZINAN [Concomitant]
     Dosage: UNKNOWN START DATE, THERAPY AT 8 MG 2-3X PER DAY, STOP 23-AUG-2010
     Route: 048
  5. PRIALT [Suspect]
     Indication: PAIN
     Route: 037
     Dates: start: 20090902, end: 20090907
  6. PRIALT [Suspect]
     Route: 037
     Dates: start: 20090908, end: 20090914
  7. PRIALT [Suspect]
     Route: 037
     Dates: start: 20090915, end: 20090922
  8. PRIALT [Suspect]
     Route: 037
     Dates: start: 20090923, end: 20090930
  9. PRIALT [Suspect]
     Route: 037
     Dates: start: 20091001, end: 20091007
  10. PRIALT [Suspect]
     Route: 037
     Dates: start: 20091008, end: 20091025
  11. PRIALT [Suspect]
     Route: 037
     Dates: start: 20091026, end: 20100209
  12. PRIALT [Suspect]
     Route: 037
     Dates: start: 20100210, end: 20100323
  13. PRIALT [Suspect]
     Route: 037
     Dates: start: 20100324, end: 20100601
  14. PRIALT [Suspect]
     Route: 037
     Dates: start: 20100601, end: 20100718
  15. PRIALT [Suspect]
     Route: 037
     Dates: start: 20100719, end: 20100802
  16. PRIALT [Suspect]
     Route: 037
     Dates: start: 20100803, end: 20100812
  17. TRAMAL [Suspect]
     Indication: PAIN
     Dosage: LONG TERM ADMINISTRATION AT 150-175 MG PER DAY - DOSE REDUCED
     Route: 048
     Dates: end: 20100813
  18. TRAMAL [Suspect]
     Dosage: 20 DROPS 1-3X PER DAY
     Dates: start: 20100814

REACTIONS (10)
  - ANXIETY [None]
  - DECREASED APPETITE [None]
  - DRY MOUTH [None]
  - FATIGUE [None]
  - FEELING OF DESPAIR [None]
  - HALLUCINATION, AUDITORY [None]
  - MORBID THOUGHTS [None]
  - PERSECUTORY DELUSION [None]
  - PSYCHIATRIC DECOMPENSATION [None]
  - WEIGHT DECREASED [None]
